FAERS Safety Report 21734164 (Version 2)
Quarter: 2024Q1

REPORT INFORMATION
  Report Type: Spontaneous
  Country: US (occurrence: US)
  Receive Date: 20221215
  Receipt Date: 20240116
  Transmission Date: 20240410
  Serious: No
  Sender: FDA-Public Use
  Company Number: US-PFIZER INC-202201368511

PATIENT

DRUGS (1)
  1. PAXLOVID [Suspect]
     Active Substance: NIRMATRELVIR\RITONAVIR
     Indication: COVID-19 treatment
     Dosage: UNK
     Dates: start: 20221210

REACTIONS (8)
  - Chest discomfort [Unknown]
  - Throat tightness [Unknown]
  - Depression [Unknown]
  - Abdominal discomfort [Unknown]
  - Illness [Unknown]
  - Vomiting [Unknown]
  - Dyspnoea [Unknown]
  - Malaise [Unknown]
